FAERS Safety Report 7784239-3 (Version None)
Quarter: 2011Q3

REPORT INFORMATION
  Report Type: 
  Country: None (occurrence: None)
  Receive Date: 20110928
  Receipt Date: 20110922
  Transmission Date: 20111222
  Serious: Yes (Hospitalization, Other)
  Sender: FDA-Public Use
  Company Number: US-ABBOTT-11P-163-0857808-00

PATIENT
  Sex: Female

DRUGS (8)
  1. PHENERGAN HCL [Concomitant]
     Indication: NAUSEA
  2. PAROXETINE HCL [Concomitant]
     Indication: PRODUCT USED FOR UNKNOWN INDICATION
  3. ESTRADIOL [Concomitant]
     Indication: PRODUCT USED FOR UNKNOWN INDICATION
  4. AMLODIPINE [Concomitant]
     Indication: PRINZMETAL ANGINA
  5. HUMIRA [Suspect]
     Indication: CROHN'S DISEASE
     Route: 058
     Dates: start: 20100701, end: 20110817
  6. PREMARIN [Concomitant]
     Indication: HORMONE REPLACEMENT THERAPY
  7. MULTIPLE VITAMINS [Concomitant]
     Indication: VITAMIN SUPPLEMENTATION
  8. ROBINUL [Concomitant]
     Indication: CROHN'S DISEASE

REACTIONS (10)
  - ARTHRITIS [None]
  - RESPIRATORY ARREST [None]
  - BRONCHITIS [None]
  - DIARRHOEA [None]
  - CROHN'S DISEASE [None]
  - PNEUMONIA [None]
  - NASOPHARYNGITIS [None]
  - INFLUENZA LIKE ILLNESS [None]
  - JOINT SWELLING [None]
  - CONSTIPATION [None]
